FAERS Safety Report 4468002-7 (Version None)
Quarter: 2004Q4

REPORT INFORMATION
  Report Type: 
  Country: None (occurrence: None)
  Receive Date: 20041004
  Receipt Date: 20040922
  Transmission Date: 20050328
  Serious: Yes (Hospitalization)
  Sender: FDA-Public Use
  Company Number: 2004235340SE

PATIENT
  Age: 88 Year
  Sex: Female

DRUGS (16)
  1. FRAGMIN [Suspect]
     Indication: PULMONARY EMBOLISM
     Dosage: 0.4 ML, SUBCUTANEOUS
     Route: 058
     Dates: end: 20040701
  2. FRAGMIN [Suspect]
     Indication: PULMONARY EMBOLISM
     Dosage: 0.4 ML, SUBCUTANEOUS
     Route: 058
     Dates: start: 20040630
  3. OXIS TURBUHALER (FORMOTEROL FUMARATE) [Concomitant]
  4. PULMICORT [Concomitant]
  5. COZAAR [Concomitant]
  6. ACETAMINOPHEN [Concomitant]
  7. ISOPTO-MAXIDEX [Concomitant]
  8. BEHEPAN [Concomitant]
  9. PREDNISOLONE [Concomitant]
  10. THEO-DUR [Concomitant]
  11. FUROSEMIDE [Concomitant]
  12. TENORMIN [Concomitant]
  13. OPTIMOL [Concomitant]
  14. DEXOFEN (DEXTROPROPOXYPHENE NAPSILATE) [Concomitant]
  15. VISIPAQUE [Concomitant]
  16. XALATAN [Concomitant]

REACTIONS (1)
  - URTICARIA [None]
